FAERS Safety Report 23211324 (Version 1)
Quarter: 2023Q4

REPORT INFORMATION
  Report Type: Spontaneous
  Country: SI (occurrence: SI)
  Receive Date: 20231121
  Receipt Date: 20231121
  Transmission Date: 20240110
  Serious: Yes (Hospitalization)
  Sender: FDA-Public Use
  Company Number: SI-VERTEX PHARMACEUTICALS-2023-016110

PATIENT
  Age: 3 Year
  Sex: Female

DRUGS (2)
  1. ORKAMBI [Suspect]
     Active Substance: IVACAFTOR\LUMACAFTOR
     Indication: Cystic fibrosis
     Dosage: 100MG LUMACAFTOR/125MG IVACAFTOR
     Route: 048
  2. PANCRELIPASE [Concomitant]
     Active Substance: PANCRELIPASE

REACTIONS (4)
  - Frequent bowel movements [Unknown]
  - Faeces soft [Recovered/Resolved]
  - Abnormal faeces [Unknown]
  - Diarrhoea [Unknown]
